FAERS Safety Report 6303945-0 (Version None)
Quarter: 2009Q3

REPORT INFORMATION
  Report Type: 
  Country: None (occurrence: None)
  Receive Date: 20090810
  Receipt Date: 20090810
  Transmission Date: 20100115
  Serious: Yes (Other)
  Sender: FDA-Public Use
  Company Number: None

PATIENT
  Age: 45 Year
  Sex: Female
  Weight: 120.2032 kg

DRUGS (2)
  1. SEROQUEL [Suspect]
     Indication: SCHIZOPHRENIA
     Dosage: 100MG DAILY PO
     Route: 048
     Dates: start: 20010301, end: 20090601
  2. GEODON [Suspect]
     Indication: SCHIZOPHRENIA
     Dosage: 40MG DAILY PO
     Route: 048
     Dates: start: 20090701, end: 20090801

REACTIONS (2)
  - DYSTONIA [None]
  - TARDIVE DYSKINESIA [None]
